FAERS Safety Report 17079712 (Version 3)
Quarter: 2019Q4

REPORT INFORMATION
  Report Type: Report from Study
  Country: US (occurrence: US)
  Receive Date: 20191127
  Receipt Date: 20191217
  Transmission Date: 20200122
  Serious: Yes (Hospitalization, Other)
  Sender: FDA-Public Use
  Company Number: US-ROCHE-2460702

PATIENT
  Age: 73 Year
  Sex: Male
  Weight: 78 kg

DRUGS (5)
  1. BENDAMUSTINE [Suspect]
     Active Substance: BENDAMUSTINE
     Indication: B-CELL LYMPHOMA
     Dosage: LAST DOSE:31/AUG/2019
     Route: 042
     Dates: start: 20190412
  2. OBINUTUZUMAB. [Suspect]
     Active Substance: OBINUTUZUMAB
     Indication: B-CELL LYMPHOMA
     Dosage: LAST DOSE: 12/SEP/2019
     Route: 042
     Dates: start: 20180412
  3. VENETOCLAX. [Suspect]
     Active Substance: VENETOCLAX
     Indication: B-CELL LYMPHOMA
     Dosage: LAST DOSE : 30/AUG/2019
     Route: 048
     Dates: start: 20180412
  4. ZOSYN [Concomitant]
     Active Substance: PIPERACILLIN SODIUM\TAZOBACTAM SODIUM
     Route: 065
  5. BUMEX [Concomitant]
     Active Substance: BUMETANIDE
     Route: 042

REACTIONS (2)
  - Pneumonia [Recovered/Resolved with Sequelae]
  - Atrial fibrillation [Recovered/Resolved]

NARRATIVE: CASE EVENT DATE: 20191028
